FAERS Safety Report 9685544 (Version 2)
Quarter: 2013Q4

REPORT INFORMATION
  Report Type: Spontaneous
  Country: JP (occurrence: JP)
  Receive Date: 20131113
  Receipt Date: 20131113
  Transmission Date: 20140711
  Serious: Yes (Other)
  Sender: FDA-Public Use
  Company Number: JP-EISAI INC-E3810-06743-SPO-JP

PATIENT
  Sex: Female

DRUGS (7)
  1. PARIET (RABEPRAZOLE) [Suspect]
     Indication: GASTRIC ULCER
     Dosage: UNKNOWN
     Route: 048
     Dates: start: 201203, end: 201211
  2. AMLODIN [Concomitant]
     Indication: HYPERTENSION
     Dosage: UNKNOWN
     Route: 048
  3. RHEUMATREX [Concomitant]
     Indication: RHEUMATIC DISORDER
     Dosage: UNKNOWN
     Route: 048
  4. ISALON [Concomitant]
     Dosage: UNKNOWN
     Route: 048
  5. DEPAS [Concomitant]
     Dosage: UNKNOWN
     Route: 048
  6. BIOFERMIN [Concomitant]
     Dosage: UNKNOWN
     Route: 048
  7. KAMISHOYOSAN [Concomitant]
     Dosage: UNKNOWN
     Route: 048

REACTIONS (1)
  - Colitis microscopic [Recovering/Resolving]
